FAERS Safety Report 13526186 (Version 1)
Quarter: 2017Q2

REPORT INFORMATION
  Report Type: Spontaneous
  Country: DE (occurrence: DE)
  Receive Date: 20170509
  Receipt Date: 20170509
  Transmission Date: 20170830
  Serious: Yes (Other)
  Sender: FDA-Public Use
  Company Number: DE-DRREDDYS-GER/GER/17/0090454

PATIENT
  Age: 39 Year
  Sex: Female
  Weight: 118 kg

DRUGS (4)
  1. AMOXICILLIN. [Concomitant]
     Active Substance: AMOXICILLIN
     Indication: URINARY TRACT INFECTION
     Route: 048
     Dates: start: 20160516, end: 20160520
  2. QUETIAPINE. [Suspect]
     Active Substance: QUETIAPINE
     Indication: BIPOLAR DISORDER
     Dosage: INITIAL 200MG/D, DOSAGE INCREASE TO 400MG/D FROM WEEK
     Route: 048
     Dates: start: 20160208, end: 20161107
  3. QUETIAPINE. [Suspect]
     Active Substance: QUETIAPINE
     Dosage: 0. - 15. GESTATIONAL WEEK
     Route: 048
  4. FOLIO FORTE [Concomitant]
     Active Substance: FOLIC ACID\VITAMINS
     Indication: PROPHYLAXIS OF NEURAL TUBE DEFECT
     Route: 048

REACTIONS (3)
  - Exposure during pregnancy [Recovered/Resolved]
  - Amniotic fluid volume increased [Recovered/Resolved]
  - Gestational diabetes [Recovered/Resolved]
